FAERS Safety Report 4305581-4 (Version None)
Quarter: 2004Q1

REPORT INFORMATION
  Report Type: 
  Country: None (occurrence: None)
  Receive Date: 20040226
  Receipt Date: 20031203
  Transmission Date: 20041129
  Serious: No
  Sender: FDA-Public Use
  Company Number: US-BRISTOL-MYERS SQUIBB COMPANY-12450839

PATIENT

DRUGS (1)
  1. ABILIFY [Suspect]

REACTIONS (1)
  - MANIA [None]
